FAERS Safety Report 13001717 (Version 1)
Quarter: 2016Q4

REPORT INFORMATION
  Report Type: Spontaneous
  Country: US (occurrence: US)
  Receive Date: 20161205
  Receipt Date: 20161205
  Transmission Date: 20170207
  Serious: Yes (Hospitalization)
  Sender: FDA-Public Use
  Company Number: None

PATIENT
  Age: 65 Year
  Sex: Male
  Weight: 97 kg

DRUGS (18)
  1. ALLOPURINOL. [Concomitant]
     Active Substance: ALLOPURINOL
  2. ASPIRIN. [Concomitant]
     Active Substance: ASPIRIN
  3. BUMETANIDE. [Concomitant]
     Active Substance: BUMETANIDE
  4. DULOXETINE. [Concomitant]
     Active Substance: DULOXETINE
  5. VALGANCICLOVIR. [Concomitant]
     Active Substance: VALGANCICLOVIR
  6. MYCOPHENOLATE [Concomitant]
     Active Substance: MYCOPHENOLIC ACID
  7. BRACTIM DS [Concomitant]
  8. KAYEXALATE [Suspect]
     Active Substance: SODIUM POLYSTYRENE SULFONATE
     Indication: HYPERKALAEMIA
     Dosage: ?          OTHER FREQUENCY:ONCE;?
     Route: 048
     Dates: start: 20161124, end: 20161124
  9. PREDNISONE TAPER [Concomitant]
     Active Substance: PREDNISONE
  10. TACROLIMUS. [Concomitant]
     Active Substance: TACROLIMUS
  11. CETIRIZINE [Concomitant]
     Active Substance: CETIRIZINE HYDROCHLORIDE
  12. FLUTICASONE (FLONASE) [Concomitant]
  13. METOPROLOL. [Concomitant]
     Active Substance: METOPROLOL
  14. OMEPRAZOLE. [Concomitant]
     Active Substance: OMEPRAZOLE
  15. OXYCODONE [Concomitant]
     Active Substance: OXYCODONE
  16. SENNOSIDE DOCUSATE [Concomitant]
  17. ATORVASTATIN [Concomitant]
     Active Substance: ATORVASTATIN
  18. TAMSULOSIN [Concomitant]
     Active Substance: TAMSULOSIN

REACTIONS (4)
  - Gastrointestinal toxicity [None]
  - Hyperkalaemia [None]
  - Gastrointestinal injury [None]
  - Diarrhoea [None]

NARRATIVE: CASE EVENT DATE: 20161124
